FAERS Safety Report 5884749-X (Version None)
Quarter: 2008Q3

REPORT INFORMATION
  Report Type: 
  Country: None (occurrence: None)
  Receive Date: 20080916
  Receipt Date: 20080910
  Transmission Date: 20090109
  Serious: Yes (Life-Threatening, Hospitalization)
  Sender: FDA-Public Use
  Company Number: FR-WYE-G02141108

PATIENT
  Sex: Male

DRUGS (8)
  1. ADVIL [Suspect]
     Indication: TOOTHACHE
     Dosage: ONE SINGLE DOSE
     Route: 048
     Dates: start: 20080626, end: 20080626
  2. FLAGYL [Suspect]
     Indication: TOOTHACHE
     Dosage: ONE SINGLE DOSE
     Route: 048
     Dates: start: 20080626, end: 20080626
  3. SERETIDE [Concomitant]
     Dosage: UNKNOWN
     Route: 048
  4. ATENOLOL [Concomitant]
     Dosage: UNKNOWN
     Route: 048
  5. COVERSYL [Concomitant]
     Dosage: UNKNOWN
     Route: 048
  6. SIMVASTATIN [Concomitant]
     Dosage: UNKNOWN
     Route: 048
  7. AMOXICILLIN [Suspect]
     Indication: TOOTHACHE
     Dosage: ONE SINGLE DOSE
     Route: 048
     Dates: start: 20080626, end: 20080626
  8. ASPEGIC 325 [Concomitant]
     Dosage: UNKNOWN
     Route: 048

REACTIONS (3)
  - ANAPHYLACTIC SHOCK [None]
  - CHEST DISCOMFORT [None]
  - ELECTROCARDIOGRAM ST SEGMENT ELEVATION [None]
